FAERS Safety Report 9854479 (Version 2)
Quarter: 2014Q1

REPORT INFORMATION
  Report Type: Spontaneous
  Country: US (occurrence: US)
  Receive Date: 20140130
  Receipt Date: 20140224
  Transmission Date: 20141002
  Serious: No
  Sender: FDA-Public Use
  Company Number: US-BIOGENIDEC-2014BI006991

PATIENT
  Age: 60 Year
  Sex: Female

DRUGS (8)
  1. TECFIDERA [Suspect]
     Indication: MULTIPLE SCLEROSIS
     Route: 048
     Dates: start: 20131211, end: 20131217
  2. TECFIDERA [Suspect]
     Indication: MULTIPLE SCLEROSIS
     Route: 048
     Dates: start: 20131218
  3. LOVASTATIN [Concomitant]
  4. BUPROPION HCL XL [Concomitant]
  5. LISINOPRIL [Concomitant]
  6. LANTUS [Concomitant]
  7. NOVOLOG INSULIN [Concomitant]
  8. STARLIX [Concomitant]

REACTIONS (3)
  - Memory impairment [Unknown]
  - Insomnia [Unknown]
  - Blood glucose decreased [Unknown]
